FAERS Safety Report 19889166 (Version 1)
Quarter: 2021Q3

REPORT INFORMATION
  Report Type: Spontaneous
  Country: US (occurrence: US)
  Receive Date: 20210927
  Receipt Date: 20210927
  Transmission Date: 20211014
  Serious: Yes (Hospitalization)
  Sender: FDA-Public Use
  Company Number: US-009507513-2109USA006040

PATIENT
  Sex: Female

DRUGS (3)
  1. PRINIVIL [Suspect]
     Active Substance: LISINOPRIL
     Indication: BLOOD PRESSURE INCREASED
     Dosage: 10 MILLIGRAM, FREQUENCY: UNKNOWN
     Route: 048
  2. LENVATINIB MESYLATE [Suspect]
     Active Substance: LENVATINIB MESYLATE
     Indication: SALIVARY GLAND CANCER
     Dosage: 18 MILLIGRAM, DAILY BY MOUTH
     Route: 048
     Dates: start: 202108
  3. PRINIVIL [Suspect]
     Active Substance: LISINOPRIL
     Dosage: 20 MILLIGRAM, FREQUENCY: UNKNOWN
     Dates: start: 2021

REACTIONS (1)
  - Drug ineffective [Not Recovered/Not Resolved]

NARRATIVE: CASE EVENT DATE: 2021
